FAERS Safety Report 23349370 (Version 1)
Quarter: 2023Q4

REPORT INFORMATION
  Report Type: Spontaneous
  Country: FR (occurrence: FR)
  Receive Date: 20231229
  Receipt Date: 20231229
  Transmission Date: 20240109
  Serious: Yes (Other)
  Sender: FDA-Public Use
  Company Number: None

PATIENT
  Age: 78 Year
  Sex: Female

DRUGS (2)
  1. TRACLEER [Suspect]
     Active Substance: BOSENTAN
     Indication: Hypertension
     Route: 048
     Dates: start: 20231010
  2. TRACLEER [Suspect]
     Active Substance: BOSENTAN
     Indication: Hypertension
     Route: 048
     Dates: start: 20231108

REACTIONS (2)
  - Eosinophilia [Recovered/Resolved]
  - Hepatitis [Recovered/Resolved]

NARRATIVE: CASE EVENT DATE: 20231122
